FAERS Safety Report 6297240-6 (Version None)
Quarter: 2009Q3

REPORT INFORMATION
  Report Type: 
  Country: None (occurrence: None)
  Receive Date: 20090804
  Receipt Date: 20090804
  Transmission Date: 20100115
  Serious: Yes (Other)
  Sender: FDA-Public Use
  Company Number: None

PATIENT
  Sex: Female
  Weight: 77.1115 kg

DRUGS (1)
  1. NAPROXEN [Suspect]
     Indication: URINARY TRACT INFECTION
     Dosage: 2 DAILY TOTAL 5
     Dates: start: 20090601, end: 20090603

REACTIONS (5)
  - ABASIA [None]
  - FLUID RETENTION [None]
  - GAIT DISTURBANCE [None]
  - OEDEMA PERIPHERAL [None]
  - PAIN [None]
